FAERS Safety Report 10020439 (Version 1)
Quarter: 2014Q1

REPORT INFORMATION
  Report Type: Spontaneous
  Country: US (occurrence: US)
  Receive Date: 20140319
  Receipt Date: 20140319
  Transmission Date: 20141002
  Serious: No
  Sender: FDA-Public Use
  Company Number: US-BIOGENIDEC-2014BI022565

PATIENT
  Age: 67 Year
  Sex: Female

DRUGS (15)
  1. TECFIDERA [Suspect]
     Indication: MULTIPLE SCLEROSIS
     Route: 048
  2. ALENDRONATE SODIUM [Concomitant]
  3. AMPYRA [Concomitant]
  4. ASPIRIN [Concomitant]
  5. ATENOLOL [Concomitant]
  6. B12-ACTIVE [Concomitant]
  7. BUPROPION HCL ER (XL) [Concomitant]
  8. CALCIUM 600 [Concomitant]
  9. DIAZEPAM [Concomitant]
  10. ESTRADIOL [Concomitant]
  11. LOSARTAN POTASSIUM [Concomitant]
  12. MAGNESIUM [Concomitant]
  13. OMEGA 3 [Concomitant]
  14. SIMVASTATIN [Concomitant]
  15. VITAMIN D-3 [Concomitant]

REACTIONS (1)
  - Bronchitis [Unknown]
